FAERS Safety Report 4431913-2 (Version None)
Quarter: 2004Q3

REPORT INFORMATION
  Report Type: 
  Country: None (occurrence: None)
  Receive Date: 20040818
  Receipt Date: 20040802
  Transmission Date: 20050211
  Serious: Yes (Other)
  Sender: FDA-Public Use
  Company Number: US_990521723

PATIENT
  Sex: Female
  Weight: 61 kg

DRUGS (2)
  1. HUMALOG [Suspect]
     Indication: DIABETES MELLITUS
  2. HUMULIN L [Suspect]
     Indication: DIABETES MELLITUS

REACTIONS (2)
  - BLINDNESS [None]
  - BLOOD GLUCOSE FLUCTUATION [None]
